FAERS Safety Report 12559071 (Version 3)
Quarter: 2016Q3

REPORT INFORMATION
  Report Type: Spontaneous
  Country: US (occurrence: US)
  Receive Date: 20160715
  Receipt Date: 20160919
  Transmission Date: 20161109
  Serious: Yes (Other)
  Sender: FDA-Public Use
  Company Number: US-TEVA-660934USA

PATIENT
  Age: 55 Year
  Sex: Female

DRUGS (8)
  1. WELLBUTRIN [Concomitant]
     Active Substance: BUPROPION HYDROCHLORIDE
  2. ADDERALL [Concomitant]
     Active Substance: AMPHETAMINE ASPARTATE\AMPHETAMINE SULFATE\DEXTROAMPHETAMINE SACCHARATE\DEXTROAMPHETAMINE SULFATE
  3. NEURONTON [Concomitant]
  4. ZOCOR [Concomitant]
     Active Substance: SIMVASTATIN
  5. TOPAMAX [Concomitant]
     Active Substance: TOPIRAMATE
  6. CLONAZAPAM [Concomitant]
     Active Substance: CLONAZEPAM
  7. ZECUITY [Suspect]
     Active Substance: SUMATRIPTAN SUCCINATE
     Indication: HEADACHE
     Route: 062
     Dates: start: 201605, end: 201605
  8. ASSEFEX [Concomitant]

REACTIONS (14)
  - Application site scar [Not Recovered/Not Resolved]
  - Application site exfoliation [Unknown]
  - Application site burn [Not Recovered/Not Resolved]
  - Application site pain [Not Recovered/Not Resolved]
  - Application site discomfort [Not Recovered/Not Resolved]
  - Application site urticaria [Not Recovered/Not Resolved]
  - Application site scab [Not Recovered/Not Resolved]
  - Application site warmth [Not Recovered/Not Resolved]
  - Application site discolouration [Not Recovered/Not Resolved]
  - Application site papules [Not Recovered/Not Resolved]
  - Application site pruritus [Not Recovered/Not Resolved]
  - Application site erythema [Not Recovered/Not Resolved]
  - Application site irritation [Not Recovered/Not Resolved]
  - Incorrect drug administration duration [Unknown]

NARRATIVE: CASE EVENT DATE: 201605
